FAERS Safety Report 7689665-9 (Version None)
Quarter: 2011Q3

REPORT INFORMATION
  Report Type: 
  Country: None (occurrence: None)
  Receive Date: 20110817
  Receipt Date: 20110816
  Transmission Date: 20111222
  Serious: Yes (Hospitalization)
  Sender: FDA-Public Use
  Company Number: IT-ROCHE-796977

PATIENT
  Sex: Female

DRUGS (3)
  1. ZOMETA [Concomitant]
     Route: 042
     Dates: start: 20100511, end: 20100706
  2. AVASTIN [Suspect]
     Indication: BREAST CANCER
     Dosage: FREQUENCY: CYCLIC
     Route: 042
     Dates: start: 20100414, end: 20100625
  3. TAXOL [Concomitant]
     Route: 042
     Dates: start: 20100614, end: 20100625

REACTIONS (5)
  - PARAESTHESIA [None]
  - NIGHT SWEATS [None]
  - EPISTAXIS [None]
  - WALKING DISABILITY [None]
  - ASTHENIA [None]
